FAERS Safety Report 21001008 (Version 2)
Quarter: 2022Q3

REPORT INFORMATION
  Report Type: Spontaneous
  Country: SA (occurrence: SA)
  Receive Date: 20220624
  Receipt Date: 20220721
  Transmission Date: 20221027
  Serious: Yes (Death, Other)
  Sender: FDA-Public Use
  Company Number: SA-BIOVITRUM-2022SA08186

PATIENT
  Age: 4 Month
  Sex: Male

DRUGS (1)
  1. GAMIFANT [Suspect]
     Active Substance: EMAPALUMAB-LZSG
     Indication: Familial haemophagocytic lymphohistiocytosis
     Dates: start: 20220602, end: 20220616

REACTIONS (1)
  - Klebsiella infection [Fatal]

NARRATIVE: CASE EVENT DATE: 20220622
